FAERS Safety Report 23343845 (Version 1)
Quarter: 2023Q4

REPORT INFORMATION
  Report Type: Spontaneous
  Country: ES (occurrence: ES)
  Receive Date: 20231227
  Receipt Date: 20231227
  Transmission Date: 20240109
  Serious: Yes (Other)
  Sender: FDA-Public Use
  Company Number: ES-ABBVIE-5380184

PATIENT
  Age: 80 Year
  Sex: Female

DRUGS (2)
  1. ADALIMUMAB [Suspect]
     Active Substance: ADALIMUMAB\ISOPROPYL ALCOHOL
     Indication: Crohn^s disease
     Route: 058
  2. TACROLIMUS [Suspect]
     Active Substance: TACROLIMUS
     Indication: Crohn^s disease
     Route: 065

REACTIONS (3)
  - Gastrointestinal disorder [Unknown]
  - Skin lesion [Unknown]
  - Therapeutic product effect incomplete [Unknown]
